FAERS Safety Report 5229055-1 (Version None)
Quarter: 2007Q1

REPORT INFORMATION
  Report Type: 
  Country: None (occurrence: None)
  Receive Date: 20061201
  Receipt Date: 20060802
  Transmission Date: 20070707
  Serious: No
  Sender: FDA-Public Use
  Company Number: US200608000673

PATIENT
  Age: 40 Year
  Sex: Female

DRUGS (4)
  1. CYMBALTA [Suspect]
     Dates: start: 20060301, end: 20060101
  2. OXYCODONE HCL [Concomitant]
  3. METHADONE HCL [Concomitant]
  4. CELEXA [Concomitant]

REACTIONS (3)
  - HYPOAESTHESIA [None]
  - ILL-DEFINED DISORDER [None]
  - NEURALGIA [None]
